FAERS Safety Report 5117265-3 (Version None)
Quarter: 2006Q3

REPORT INFORMATION
  Report Type: 
  Country: None (occurrence: None)
  Receive Date: 20060926
  Receipt Date: 20060914
  Transmission Date: 20061208
  Serious: Yes (Other)
  Sender: FDA-Public Use
  Company Number: 2006097952

PATIENT
  Sex: Female

DRUGS (2)
  1. LYRICA [Suspect]
     Indication: BURNING SENSATION
     Dosage: 50 MG (1 IN 1 D), UNKNOWN
  2. LYRICA [Suspect]
     Indication: PARAESTHESIA
     Dosage: 50 MG (1 IN 1 D), UNKNOWN

REACTIONS (3)
  - DIABETES MELLITUS NON-INSULIN-DEPENDENT [None]
  - NEUROPATHY PERIPHERAL [None]
  - VISION BLURRED [None]
